FAERS Safety Report 13444698 (Version 3)
Quarter: 2017Q3

REPORT INFORMATION
  Report Type: Spontaneous
  Country: FR (occurrence: FR)
  Receive Date: 20170414
  Receipt Date: 20170717
  Transmission Date: 20171127
  Serious: Yes (Hospitalization, Other)
  Sender: FDA-Public Use
  Company Number: FR-PFIZER INC-2017163790

PATIENT
  Age: 29 Year
  Sex: Female

DRUGS (2)
  1. CYTOTEC [Suspect]
     Active Substance: MISOPROSTOL
     Indication: ABORTION INDUCED
     Dosage: 400 UG, 2X/DAY (APART FROM 2 HRS)
     Route: 048
     Dates: start: 20010914, end: 20010914
  2. MIFEGYNE [Suspect]
     Active Substance: MIFEPRISTONE
     Indication: ABORTION INDUCED
     Dosage: 400 MG, 1X/DAY
     Route: 048
     Dates: start: 20010912, end: 20010912

REACTIONS (6)
  - Arthritis [Recovered/Resolved]
  - Metrorrhagia [Recovered/Resolved]
  - Haemorrhagic anaemia [Recovered/Resolved]
  - Drug ineffective for unapproved indication [Recovered/Resolved]
  - Streptococcal sepsis [Recovered/Resolved]
  - Endometritis [Recovered/Resolved]

NARRATIVE: CASE EVENT DATE: 200109
